FAERS Safety Report 6133649-9 (Version None)
Quarter: 2009Q1

REPORT INFORMATION
  Report Type: 
  Country: None (occurrence: None)
  Receive Date: 20090326
  Receipt Date: 20090320
  Transmission Date: 20090719
  Serious: Yes (Hospitalization)
  Sender: FDA-Public Use
  Company Number: A0755867A

PATIENT
  Age: 75 Year
  Sex: Male
  Weight: 81.4 kg

DRUGS (6)
  1. AVANDIA [Suspect]
     Dosage: 2MG UNKNOWN
     Route: 048
  2. AVANDAMET [Suspect]
     Route: 048
  3. TOPROL-XL [Concomitant]
  4. PRAVASTATIN [Concomitant]
  5. NIACIN [Concomitant]
  6. ASPIRIN [Concomitant]

REACTIONS (1)
  - CORONARY ARTERY OCCLUSION [None]
